FAERS Safety Report 14348838 (Version 1)
Quarter: 2018Q1

REPORT INFORMATION
  Report Type: Spontaneous
  Country: US (occurrence: US)
  Receive Date: 20180104
  Receipt Date: 20180104
  Transmission Date: 20180509
  Serious: No
  Sender: FDA-Public Use
  Company Number: US-ASTRAZENECA-2017SF29912

PATIENT
  Age: 26559 Day
  Sex: Female
  Weight: 104.3 kg

DRUGS (2)
  1. SYMBICORT [Suspect]
     Active Substance: BUDESONIDE\FORMOTEROL FUMARATE DIHYDRATE
     Indication: ASTHMA
     Dosage: 160/4.5UG, 2 PUFFS TWO TIMES A DAY
     Route: 055
     Dates: start: 20171207
  2. PROAIR HFA [Concomitant]
     Active Substance: ALBUTEROL SULFATE
     Indication: OXYGEN THERAPY

REACTIONS (7)
  - Cough [Unknown]
  - Drug administration error [Unknown]
  - Dyspnoea [Unknown]
  - Wheezing [Unknown]
  - Secretion discharge [Unknown]
  - Anxiety [Unknown]
  - Thinking abnormal [Unknown]

NARRATIVE: CASE EVENT DATE: 20171218
